FAERS Safety Report 9549590 (Version 1)
Quarter: 2013Q3

REPORT INFORMATION
  Report Type: Spontaneous
  Country: US (occurrence: US)
  Receive Date: 20130924
  Receipt Date: 20130924
  Transmission Date: 20140515
  Serious: Yes (Other)
  Sender: FDA-Public Use
  Company Number: US-B.I. PHARMACEUTICALS,INC./RIDGEFIELD-2013-BI-29532BP

PATIENT
  Sex: Female
  Weight: 75 kg

DRUGS (4)
  1. COMBIVENT [Suspect]
     Indication: DYSPNOEA
     Dosage: DOSE PER APPLICATION: 18 MCG / 103 MCG; DAILY DOSE: 72MCG/400MCG
     Route: 055
     Dates: start: 2003
  2. ACTONEL [Concomitant]
     Indication: BONE DENSITY ABNORMAL
     Dates: start: 2003
  3. ATORVASTATIN [Concomitant]
     Indication: BLOOD CHOLESTEROL INCREASED
     Dates: start: 2003
  4. BABY ASPIRIN [Concomitant]
     Indication: CARDIAC DISORDER
     Dates: start: 2003

REACTIONS (2)
  - Cerebrovascular accident [Recovered/Resolved with Sequelae]
  - Off label use [Not Recovered/Not Resolved]
